FAERS Safety Report 4766307-3 (Version None)
Quarter: 2005Q3

REPORT INFORMATION
  Report Type: 
  Country: None (occurrence: None)
  Receive Date: 20050909
  Receipt Date: 20050812
  Transmission Date: 20060218
  Serious: Yes (Hospitalization)
  Sender: FDA-Public Use
  Company Number: 6016639

PATIENT
  Age: 80 Year
  Sex: Female

DRUGS (6)
  1. DAPA-TABS (2,5 MG, TABLET) INDAPAMIDE [Suspect]
     Dosage: 2,5 MG (2,5 MG, 1 IN 2 D) ORAL
     Route: 048
     Dates: end: 20010824
  2. MORPHINE (2,5 MG, INJECTION) [Suspect]
     Indication: PAIN
     Dosage: 2,5 MG (2,5 MG, 1 D) INTRAVENOUS
     Route: 042
     Dates: start: 20010823, end: 20010824
  3. TRAMAL (400 MG, CAPSULE) (TRAMADOL HYDROCHLORIDE) [Suspect]
     Dosage: 400 MG (400 MG, 1 D) ORAL
     Route: 048
     Dates: start: 20010823, end: 20010824
  4. PANADEINE FORTE (3 DOSAGE FORMS) (CODEINE PHOSPHATE, PARACETAMOL) [Suspect]
     Indication: PAIN
     Dosage: 3 DOSAGE FORMS (3 DOSAGE FORMS, 1 D)
     Dates: start: 20010823, end: 20010824
  5. QUINAPRIL HCL [Suspect]
     Dosage: 10 MG (10 MG, 1 D) ORAL
     Route: 048
     Dates: end: 20010824
  6. MINAX (METOPROLOL TARTRATE) [Concomitant]

REACTIONS (6)
  - BLOOD CREATINE PHOSPHOKINASE INCREASED [None]
  - COMA [None]
  - DELIRIUM [None]
  - HYPERTENSION [None]
  - RASH ERYTHEMATOUS [None]
  - SEROTONIN SYNDROME [None]
